FAERS Safety Report 21610728 (Version 1)
Quarter: 2022Q4

REPORT INFORMATION
  Report Type: Other
  Country: IE (occurrence: None)
  Receive Date: 20221117
  Receipt Date: 20221117
  Transmission Date: 20230113
  Serious: No
  Sender: FDA-Public Use
  Company Number: IE-ROCHE-3220266

PATIENT
  Sex: Female

DRUGS (1)
  1. OCREVUS [Suspect]
     Active Substance: OCRELIZUMAB
     Indication: Multiple sclerosis
     Route: 042

REACTIONS (3)
  - Fatigue [Unknown]
  - Bedridden [Unknown]
  - COVID-19 [Recovered/Resolved]
